FAERS Safety Report 5800591-X (Version None)
Quarter: 2008Q3

REPORT INFORMATION
  Report Type: 
  Country: None (occurrence: None)
  Receive Date: 20080702
  Receipt Date: 20080702
  Transmission Date: 20090109
  Serious: No
  Sender: FDA-Public Use
  Company Number: None

PATIENT
  Sex: Female
  Weight: 63.5036 kg

DRUGS (2)
  1. KENALOG [Suspect]
     Indication: DERMATITIS
     Dosage: 60 MG 2 IM
     Route: 030
     Dates: start: 20080331, end: 20080331
  2. KENALOG [Suspect]
     Indication: DERMATITIS
     Dosage: 60 MG 2 IM
     Route: 030
     Dates: start: 20080505, end: 20080505

REACTIONS (2)
  - INJECTION SITE REACTION [None]
  - SKIN ATROPHY [None]
